FAERS Safety Report 16425939 (Version 8)
Quarter: 2022Q2

REPORT INFORMATION
  Report Type: Report from Study
  Country: US (occurrence: US)
  Receive Date: 20190613
  Receipt Date: 20220531
  Transmission Date: 20220721
  Serious: Yes (Death, Other)
  Sender: FDA-Public Use
  Company Number: PHEH2019US024739

PATIENT
  Sex: Female
  Weight: 95.1 kg

DRUGS (4)
  1. KYMRIAH [Suspect]
     Active Substance: TISAGENLECLEUCEL
     Indication: Acute lymphocytic leukaemia recurrent
     Dosage: 0.6 KG, ONCE/SINGLE (2.1 X 10E8)
     Route: 042
     Dates: start: 20190603, end: 20190603
  2. METHYLPREDNISOLONE [Concomitant]
     Active Substance: METHYLPREDNISOLONE
     Indication: Cytokine release syndrome
     Dosage: 97 MG, BID
     Route: 042
     Dates: start: 20190608
  3. METHYLPREDNISOLONE [Concomitant]
     Active Substance: METHYLPREDNISOLONE
     Indication: Immune effector cell-associated neurotoxicity syndrome
  4. TOCILIZUMAB [Concomitant]
     Active Substance: TOCILIZUMAB
     Indication: Cytokine release syndrome
     Dosage: 800 MG
     Route: 042
     Dates: start: 20190608

REACTIONS (7)
  - Acute lymphocytic leukaemia [Fatal]
  - Cardiac arrest [Fatal]
  - Encephalopathy [Unknown]
  - Disorientation [Unknown]
  - Neurological symptom [Unknown]
  - Lethargy [Unknown]
  - Pulse absent [Unknown]
